FAERS Safety Report 5455953-X (Version None)
Quarter: 2007Q3

REPORT INFORMATION
  Report Type: 
  Country: None (occurrence: None)
  Receive Date: 20070914
  Receipt Date: 20070914
  Transmission Date: 20080115
  Serious: Yes (Hospitalization)
  Sender: FDA-Public Use
  Company Number: None

PATIENT
  Age: 39 Year
  Sex: Female
  Weight: 102.0593 kg

DRUGS (2)
  1. WARFARIN SODIUM [Suspect]
     Indication: PULMONARY EMBOLISM
     Dosage: 10MG. AND 5MG  10MG3X A WK  5MG4X  PO
     Route: 048
     Dates: start: 20040403, end: 20070913
  2. EFFEXOR XR [Suspect]
     Indication: DEPRESSION
     Dosage: 150MG  DAILY  PO
     Route: 048
     Dates: start: 20070822, end: 20070913

REACTIONS (7)
  - DEPRESSION [None]
  - DYSPNOEA [None]
  - HEART RATE IRREGULAR [None]
  - HYPOAESTHESIA ORAL [None]
  - INSOMNIA [None]
  - STOMATITIS [None]
  - VISION BLURRED [None]
